FAERS Safety Report 21051200 (Version 2)
Quarter: 2022Q3

REPORT INFORMATION
  Report Type: Report from Study
  Country: US (occurrence: None)
  Receive Date: 20220707
  Receipt Date: 20220708
  Transmission Date: 20221026
  Serious: Yes (Death)
  Sender: FDA-Public Use
  Company Number: 2022A246339

PATIENT
  Age: 26703 Day
  Sex: Female

DRUGS (1)
  1. FARXIGA [Suspect]
     Active Substance: DAPAGLIFLOZIN PROPANEDIOL
     Route: 048

REACTIONS (5)
  - Arteriosclerosis [Fatal]
  - Cardiac failure congestive [Fatal]
  - Essential hypertension [Fatal]
  - Hyperlipidaemia [Fatal]
  - Asthma [Fatal]

NARRATIVE: CASE EVENT DATE: 20220609
